FAERS Safety Report 19980282 (Version 2)
Quarter: 2021Q4

REPORT INFORMATION
  Report Type: Report from Study
  Country: CA (occurrence: CA)
  Receive Date: 20211021
  Receipt Date: 20211128
  Transmission Date: 20220303
  Serious: Yes (Other)
  Sender: FDA-Public Use
  Company Number: CA-JNJFOC-20210935914

PATIENT
  Age: 17 Year
  Sex: Male
  Weight: 77.2 kg

DRUGS (2)
  1. REMICADE [Suspect]
     Active Substance: INFLIXIMAB
     Indication: Colitis ulcerative
     Dosage: PATIENT RECEIVED REMICADE INFUSION ON 13-FEB-2020, 16-SEP-2021
     Route: 042
     Dates: start: 20200112
  2. REMICADE [Suspect]
     Active Substance: INFLIXIMAB
     Route: 042
     Dates: start: 20211122

REACTIONS (1)
  - Haematochezia [Recovering/Resolving]
